FAERS Safety Report 17461228 (Version 1)
Quarter: 2020Q1

REPORT INFORMATION
  Report Type: Spontaneous
  Country: US (occurrence: US)
  Receive Date: 20200213
  Receipt Date: 20200213
  Transmission Date: 20200409
  Serious: Yes (Hospitalization)
  Sender: FDA-Public Use
  Company Number: None

PATIENT
  Sex: Male

DRUGS (7)
  1. AMLODIPINE [Concomitant]
     Active Substance: AMLODIPINE BESYLATE
  2. ATORVASTATIN [Concomitant]
     Active Substance: ATORVASTATIN
  3. ASPIRIN. [Concomitant]
     Active Substance: ASPIRIN
  4. ATENOLOL. [Concomitant]
     Active Substance: ATENOLOL
  5. COSENTYX [Suspect]
     Active Substance: SECUKINUMAB
     Indication: RHEUMATOID ARTHRITIS
     Dosage: ?          OTHER FREQUENCY:Q4WKS;?
     Route: 058
     Dates: start: 20180310
  6. BISOPRL/HCTZ [Concomitant]
  7. AMLOD/VALSAR [Concomitant]

REACTIONS (1)
  - Stent placement [None]
